FAERS Safety Report 9124476 (Version 1)
Quarter: 2013Q1

REPORT INFORMATION
  Report Type: Spontaneous
  Country: FR (occurrence: FR)
  Receive Date: 20130116
  Receipt Date: 20130116
  Transmission Date: 20140127
  Serious: Yes (Hospitalization)
  Sender: FDA-Public Use
  Company Number: FR-009507513-1301FRA003757

PATIENT
  Age: 48 Year
  Sex: Female

DRUGS (3)
  1. SINGULAIR [Suspect]
     Indication: BRONCHIAL HYPERREACTIVITY
     Dosage: 10 MG, UNK
     Route: 048
     Dates: start: 2006, end: 20121112
  2. SERETIDE [Suspect]
     Indication: BRONCHIAL HYPERREACTIVITY
     Dosage: 1 DF, QD
     Route: 055
     Dates: start: 2009, end: 20121112
  3. LYRICA [Concomitant]

REACTIONS (1)
  - Allergic granulomatous angiitis [Recovering/Resolving]
